FAERS Safety Report 6729265-8 (Version None)
Quarter: 2010Q2

REPORT INFORMATION
  Report Type: 
  Country: None (occurrence: None)
  Receive Date: 20100517
  Receipt Date: 20100427
  Transmission Date: 20101027
  Serious: No
  Sender: FDA-Public Use
  Company Number: US-ABBOTT-10P-163-0642065-00

PATIENT
  Sex: Female
  Weight: 67.192 kg

DRUGS (7)
  1. SIMCOR [Suspect]
     Indication: BLOOD CHOLESTEROL INCREASED
     Dosage: 1 TABLET AT BEDTIME
     Route: 048
     Dates: start: 20100416
  2. UNKNOWN INHALER [Concomitant]
     Indication: ASTHMA
  3. PARSLEY SUPPLEMENT [Concomitant]
     Indication: DRUG USE FOR UNKNOWN INDICATION
     Dosage: 1 TABLET EVERY MORNING
     Route: 048
  4. CELERY SUPPLEMENT [Concomitant]
     Indication: DRUG USE FOR UNKNOWN INDICATION
     Dosage: 1 TABLET EVERY MORNING
     Route: 048
  5. GRAVEL ROOT SUPPLEMENT [Concomitant]
     Indication: DRUG USE FOR UNKNOWN INDICATION
     Dosage: 1 TABLET VERY MORNING
     Route: 048
  6. HYDRANGEA SUPPLEMENT [Concomitant]
     Indication: DRUG USE FOR UNKNOWN INDICATION
     Dosage: 1 TABLET EVERY MORNING
     Route: 048
  7. IBUPROFEN [Concomitant]
     Indication: DRUG USE FOR UNKNOWN INDICATION
     Dosage: AT BEDTIME BEFORE SIMCOR
     Route: 048
     Dates: start: 20100416, end: 20100418

REACTIONS (3)
  - FEELING HOT [None]
  - PRURITUS [None]
  - URTICARIA [None]
